FAERS Safety Report 5094219-7 (Version None)
Quarter: 2006Q3

REPORT INFORMATION
  Report Type: 
  Country: None (occurrence: None)
  Receive Date: 20060831
  Receipt Date: 20060810
  Transmission Date: 20061208
  Serious: Yes (Hospitalization)
  Sender: FDA-Public Use
  Company Number: FR-BRISTOL-MYERS SQUIBB COMPANY-13471925

PATIENT
  Age: 56 Year
  Sex: Male

DRUGS (5)
  1. APROVEL FILM-COATED TABS 150 MG [Suspect]
     Route: 048
     Dates: end: 20060619
  2. GLUCOPHAGE [Suspect]
     Dates: start: 20060617, end: 20060619
  3. SANDOGLOBULIN [Suspect]
     Route: 042
     Dates: start: 20060616, end: 20060619
  4. DAONIL [Concomitant]
     Dates: start: 20060617
  5. MOPRAL [Concomitant]

REACTIONS (6)
  - DIABETES MELLITUS [None]
  - DRUG INEFFECTIVE [None]
  - IDIOPATHIC THROMBOCYTOPENIC PURPURA [None]
  - LACTIC ACIDOSIS [None]
  - METABOLIC ACIDOSIS [None]
  - RENAL FAILURE ACUTE [None]
